FAERS Safety Report 9513922 (Version 2)
Quarter: 2013Q4

REPORT INFORMATION
  Report Type: Spontaneous
  Country: US (occurrence: US)
  Receive Date: 20130910
  Receipt Date: 20131210
  Transmission Date: 20140711
  Serious: Yes (Hospitalization)
  Sender: FDA-Public Use
  Company Number: US-B.I. PHARMACEUTICALS,INC./RIDGEFIELD-2013-BI-27733BP

PATIENT
  Sex: Female
  Weight: 89 kg

DRUGS (10)
  1. COMBIVENT [Suspect]
     Indication: CHRONIC OBSTRUCTIVE PULMONARY DISEASE
     Dosage: STRENGTH: 18 MCG / 103 MCG; DAILY DOSE: 144 MCG/824MCG
     Route: 055
     Dates: start: 2005, end: 2012
  2. WARFARIN [Concomitant]
     Indication: ANTICOAGULANT THERAPY
     Dosage: 5 MG
     Route: 048
     Dates: start: 2007
  3. TYLENO #3 [Concomitant]
     Indication: PAIN
     Dosage: STRENGTH: 300 MG/325 MG; DAILY DOSE: 600MG/650 MG
     Route: 048
     Dates: start: 2007
  4. NOVOLOG [Concomitant]
     Indication: DIABETES MELLITUS
     Route: 058
     Dates: start: 2007
  5. LISINOPRIL [Concomitant]
     Indication: HYPERTENSION
     Dosage: 20 MG
     Route: 048
     Dates: start: 2007
  6. PIROXYCAM [Concomitant]
     Indication: ARTHRITIS
     Route: 048
     Dates: start: 2007
  7. LIPITOR [Concomitant]
     Indication: BLOOD CHOLESTEROL INCREASED
     Dosage: 40 MG
     Route: 048
     Dates: start: 2007
  8. FUROSEMIDE [Concomitant]
     Indication: PULMONARY OEDEMA
     Dosage: 80 MG
     Route: 048
     Dates: start: 2007
  9. SYMBICORT [Concomitant]
     Indication: CHRONIC OBSTRUCTIVE PULMONARY DISEASE
     Dosage: 2 PUF
     Route: 055
     Dates: start: 2007
  10. ASPIRIN [Concomitant]
     Indication: ANTICOAGULANT THERAPY
     Dosage: 81 MG
     Route: 048

REACTIONS (7)
  - Heart rate irregular [Not Recovered/Not Resolved]
  - Cardiac failure congestive [Recovered/Resolved]
  - Trigger finger [Not Recovered/Not Resolved]
  - Abnormal loss of weight [Not Recovered/Not Resolved]
  - Essential tremor [Not Recovered/Not Resolved]
  - Atrial fibrillation [Recovered/Resolved]
  - Sleep apnoea syndrome [Not Recovered/Not Resolved]
